FAERS Safety Report 10384048 (Version 1)
Quarter: 2014Q3

REPORT INFORMATION
  Report Type: Report from Study
  Country: US (occurrence: US)
  Receive Date: 20140814
  Receipt Date: 20140814
  Transmission Date: 20150326
  Serious: Yes (Hospitalization, Other)
  Sender: FDA-Public Use
  Company Number: PHEH2014US015885

PATIENT
  Sex: Male
  Weight: 67.12 kg

DRUGS (7)
  1. ADVAIR HFA [Concomitant]
     Active Substance: FLUTICASONE PROPIONATE\SALMETEROL XINAFOATE
     Dosage: UKN
  2. CAYSTON [Concomitant]
     Active Substance: AZTREONAM
     Dosage: UKN
  3. TOBI PODHALER [Suspect]
     Active Substance: TOBRAMYCIN
     Indication: CYSTIC FIBROSIS
     Dosage: 112 MG TWICE A DAY
     Route: 055
     Dates: start: 201308
  4. PULMOZYME [Concomitant]
     Active Substance: DORNASE ALFA
     Dosage: UKN
  5. HYPERTONIC SALINE SOLUTION [Concomitant]
     Active Substance: SODIUM CHLORIDE
     Dosage: UKN
  6. VENTOLIN [Concomitant]
     Active Substance: ALBUTEROL SULFATE
     Dosage: UKN
  7. NASONEX [Concomitant]
     Active Substance: MOMETASONE FUROATE
     Dosage: UKN

REACTIONS (4)
  - Cough [Not Recovered/Not Resolved]
  - Condition aggravated [Not Recovered/Not Resolved]
  - Cystic fibrosis [Not Recovered/Not Resolved]
  - Stenotrophomonas infection [Not Recovered/Not Resolved]
